FAERS Safety Report 5405010-3 (Version None)
Quarter: 2007Q3

REPORT INFORMATION
  Report Type: 
  Country: None (occurrence: None)
  Receive Date: 20070803
  Receipt Date: 20070725
  Transmission Date: 20080115
  Serious: Yes (Life-Threatening, Hospitalization)
  Sender: FDA-Public Use
  Company Number: FR-AVENTIS-200712414FR

PATIENT
  Age: 84 Year
  Sex: Female

DRUGS (2)
  1. FLAGYL [Suspect]
     Route: 042
     Dates: start: 20070221, end: 20070226
  2. CLAFORAN [Suspect]
     Route: 042
     Dates: start: 20070221, end: 20070226

REACTIONS (8)
  - ARTHRITIS [None]
  - DERMATITIS BULLOUS [None]
  - HAEMATOMA [None]
  - LEUKOPENIA [None]
  - MOUTH HAEMORRHAGE [None]
  - RENAL FAILURE ACUTE [None]
  - THROMBOCYTOPENIA [None]
  - TRANSAMINASES INCREASED [None]
